FAERS Safety Report 18162516 (Version 1)
Quarter: 2020Q3

REPORT INFORMATION
  Report Type: Spontaneous
  Country: US (occurrence: US)
  Receive Date: 20200818
  Receipt Date: 20200818
  Transmission Date: 20201103
  Serious: No
  Sender: FDA-Public Use
  Company Number: None

PATIENT
  Age: 75 Year
  Sex: Female
  Weight: 70.76 kg

DRUGS (22)
  1. LYSINE [Concomitant]
     Active Substance: LYSINE
  2. ISOSORBIDE MONONITRATE ER [Concomitant]
     Active Substance: ISOSORBIDE MONONITRATE
  3. VITAMIN B12 [Concomitant]
     Active Substance: CYANOCOBALAMIN
  4. VITAMIN E [Concomitant]
     Active Substance: .ALPHA.-TOCOPHEROL
  5. RANEXA [Concomitant]
     Active Substance: RANOLAZINE
  6. NAPROXEN. [Concomitant]
     Active Substance: NAPROXEN
  7. NORTRIPTYLINE [Concomitant]
     Active Substance: NORTRIPTYLINE
  8. FUROSEMIDE. [Concomitant]
     Active Substance: FUROSEMIDE
  9. CETRIZINE [Concomitant]
     Active Substance: CETIRIZINE HYDROCHLORIDE
  10. VITAMIN D3 [Concomitant]
     Active Substance: CHOLECALCIFEROL
  11. ANASTROZOLE. [Concomitant]
     Active Substance: ANASTROZOLE
  12. CLOPIDOGREL [Concomitant]
     Active Substance: CLOPIDOGREL BISULFATE
  13. IBRANCE [Suspect]
     Active Substance: PALBOCICLIB
     Indication: BREAST CANCER
     Dosage: ?          OTHER FREQUENCY:21 DAYS ON 7 OFF;?
     Route: 048
     Dates: start: 20200521, end: 20200818
  14. ASPIRIN. [Concomitant]
     Active Substance: ASPIRIN
  15. LOSARTAN. [Concomitant]
     Active Substance: LOSARTAN
  16. METFORMIN [Concomitant]
     Active Substance: METFORMIN HYDROCHLORIDE
  17. MULTI VITAMINS [Concomitant]
     Active Substance: VITAMINS
  18. POLYEHYLENE GLYCOL 3350 [Concomitant]
  19. PANTOPRAZOLE [Concomitant]
     Active Substance: PANTOPRAZOLE
  20. ROSUVASTATIN. [Concomitant]
     Active Substance: ROSUVASTATIN
  21. ATENOLOL. [Concomitant]
     Active Substance: ATENOLOL
  22. OMEGA 3 [Concomitant]
     Active Substance: OMEGA-3 FATTY ACIDS

REACTIONS (1)
  - Disease progression [None]

NARRATIVE: CASE EVENT DATE: 20200818
